FAERS Safety Report 9500489 (Version 1)
Quarter: 2013Q3

REPORT INFORMATION
  Report Type: Spontaneous
  Country: US (occurrence: None)
  Receive Date: 20130904
  Receipt Date: 20130904
  Transmission Date: 20140515
  Serious: No
  Sender: FDA-Public Use
  Company Number: None

PATIENT
  Age: 57 None
  Sex: Female

DRUGS (5)
  1. CLINDAMYCIN [Suspect]
     Indication: INFECTION PROPHYLAXIS
     Dates: start: 20130821, end: 20130823
  2. ICLUSIG [Concomitant]
  3. FLAX SEED OIL [Concomitant]
  4. VITAMIN D [Concomitant]
  5. CLARITIN [Concomitant]

REACTIONS (3)
  - Fatigue [None]
  - Nausea [None]
  - Dyspnoea [None]
